FAERS Safety Report 11177092 (Version 1)
Quarter: 2015Q2

REPORT INFORMATION
  Report Type: Spontaneous
  Country: JP (occurrence: None)
  Receive Date: 20150608
  Receipt Date: 20150608
  Transmission Date: 20150821
  Serious: Yes (Hospitalization, Other)
  Sender: FDA-Public Use
  Company Number: 2014MPI01569

PATIENT
  Age: 30 Year
  Sex: Female
  Weight: 43.8 kg

DRUGS (6)
  1. CORTICOSTEROIDS [Concomitant]
     Active Substance: CORTICOSTEROID NOS
  2. ZOVIRAX [Concomitant]
     Active Substance: ACYCLOVIR
  3. VFEND [Suspect]
     Active Substance: VORICONAZOLE
     Indication: PNEUMONIA
     Route: 048
     Dates: start: 20141121, end: 20141127
  4. DIFLUCAN [Concomitant]
     Active Substance: FLUCONAZOLE
  5. ADCETRIS [Suspect]
     Active Substance: BRENTUXIMAB VEDOTIN
     Indication: HODGKIN^S DISEASE
     Dosage: 1.8 MG/KG, Q21D, IV DRIP
     Route: 041
     Dates: start: 20140514, end: 20140827
  6. BAKTAR (SULFAMETHOXAZOLE, TRIMETHOPRIM) TABLET [Concomitant]
     Active Substance: SULFAMETHOXAZOLE\TRIMETHOPRIM

REACTIONS (5)
  - Stomatitis [None]
  - Liver disorder [None]
  - Peripheral sensory neuropathy [None]
  - Pneumonia [None]
  - Neutrophil count decreased [None]

NARRATIVE: CASE EVENT DATE: 20140219
